FAERS Safety Report 12587604 (Version 2)
Quarter: 2016Q3

REPORT INFORMATION
  Report Type: Spontaneous
  Country: US (occurrence: US)
  Receive Date: 20160725
  Receipt Date: 20160824
  Transmission Date: 20161109
  Serious: No
  Sender: FDA-Public Use
  Company Number: US-GLAXOSMITHKLINE-US2016101360

PATIENT
  Sex: Male
  Weight: 88.44 kg

DRUGS (1)
  1. ACITRETIN TABLET [Suspect]
     Active Substance: ACITRETIN
     Indication: PSORIASIS
     Dosage: 50 MG, UNK
     Route: 048
     Dates: start: 2013, end: 2013

REACTIONS (3)
  - Drug ineffective [Unknown]
  - Psoriasis [Recovered/Resolved]
  - Product substitution issue [Unknown]

NARRATIVE: CASE EVENT DATE: 2013
